FAERS Safety Report 9506152 (Version 1)
Quarter: 2013Q1

REPORT INFORMATION
  Report Type: Spontaneous
  Country: US (occurrence: None)
  Receive Date: 20130305
  Receipt Date: 20130305
  Transmission Date: 20140127
  Serious: Yes (Other)
  Sender: FDA-Public Use
  Company Number: 163-21880-11062723

PATIENT
  Sex: Female

DRUGS (2)
  1. REVLIMID [Suspect]
     Indication: MYELODYSPLASTIC SYNDROME
     Dosage: 10 MG, CAPSULE, DAILY X 21 DAYS, PO
     Dates: start: 201105, end: 20110808
  2. BLOOD PRESSURE MEDS [Concomitant]

REACTIONS (6)
  - Full blood count decreased [None]
  - Fatigue [None]
  - Blood pressure decreased [None]
  - Pruritus [None]
  - Rash [None]
  - Constipation [None]
